FAERS Safety Report 26026912 (Version 1)
Quarter: 2025Q4

REPORT INFORMATION
  Report Type: Spontaneous
  Country: US (occurrence: US)
  Receive Date: 20251111
  Receipt Date: 20251111
  Transmission Date: 20260119
  Serious: No
  Sender: LANNETT
  Company Number: US-LANNETT COMPANY, INC.-US-2025LAN000207

PATIENT
  Sex: Female

DRUGS (2)
  1. DANAZOL [Suspect]
     Active Substance: DANAZOL
     Indication: Product used for unknown indication
     Dosage: UNK, UNK
     Route: 065
  2. JAKAFI [Suspect]
     Active Substance: RUXOLITINIB
     Indication: Myelofibrosis
     Dosage: 5 MG BID
     Dates: start: 202504

REACTIONS (2)
  - Myalgia [Unknown]
  - Arthralgia [Unknown]
